FAERS Safety Report 25735874 (Version 1)
Quarter: 2025Q3

REPORT INFORMATION
  Report Type: Spontaneous
  Country: GB (occurrence: GB)
  Receive Date: 20250828
  Receipt Date: 20250828
  Transmission Date: 20251021
  Serious: Yes (Other)
  Sender: TORRENT PHARMA INC.
  Company Number: None

PATIENT
  Age: 55 Year
  Sex: Female
  Weight: 114 kg

DRUGS (9)
  1. TOLTERODINE [Suspect]
     Active Substance: TOLTERODINE
     Indication: Urge incontinence
     Dosage: 1MG TWICE A DAY
     Route: 065
     Dates: start: 20250814, end: 20250816
  2. BUPRENORPHINE [Concomitant]
     Active Substance: BUPRENORPHINE
     Indication: Arthritis
     Route: 065
  3. CODEINE [Concomitant]
     Active Substance: CODEINE
     Indication: Pain
     Route: 065
  4. DULOXETINE [Concomitant]
     Active Substance: DULOXETINE
     Indication: Urge incontinence
     Route: 065
  5. ESTROGENS [Concomitant]
     Active Substance: ESTROGENS
     Indication: Menopause
     Route: 065
  6. ETORICOXIB [Concomitant]
     Active Substance: ETORICOXIB
     Indication: Pain
     Route: 065
  7. EZETIMIBE [Concomitant]
     Active Substance: EZETIMIBE
     Indication: Blood cholesterol increased
     Route: 065
  8. PROGESTERONE [Concomitant]
     Active Substance: PROGESTERONE
     Indication: Menopause
     Route: 065
  9. ZOPICLONE [Concomitant]
     Active Substance: ZOPICLONE
     Indication: Insomnia
     Route: 065

REACTIONS (7)
  - Arthralgia [Recovering/Resolving]
  - Pain of skin [Recovering/Resolving]
  - Headache [Recovering/Resolving]
  - Hypersensitivity [Unknown]
  - Pain [Recovering/Resolving]
  - Sensitive skin [Recovering/Resolving]
  - Myalgia [Recovering/Resolving]

NARRATIVE: CASE EVENT DATE: 20250815
